FAERS Safety Report 13982648 (Version 1)
Quarter: 2017Q3

REPORT INFORMATION
  Report Type: Spontaneous
  Country: US (occurrence: US)
  Receive Date: 20170915
  Receipt Date: 20170915
  Transmission Date: 20171128
  Serious: No
  Sender: FDA-Public Use
  Company Number: None

PATIENT
  Age: 53 Year
  Sex: Male

DRUGS (1)
  1. METHYLPREDNISOLONE. [Suspect]
     Active Substance: METHYLPREDNISOLONE
     Indication: EXPOSURE TO TOXIC AGENT
     Dates: start: 20170816, end: 20170821

REACTIONS (4)
  - Incorrect dose administered [None]
  - Inappropriate schedule of drug administration [None]
  - Product label issue [None]
  - Wrong technique in product usage process [None]

NARRATIVE: CASE EVENT DATE: 20170816
